FAERS Safety Report 8740563 (Version 2)
Quarter: 2013Q4

REPORT INFORMATION
  Report Type: Spontaneous
  Country: US (occurrence: US)
  Receive Date: 20120823
  Receipt Date: 20131101
  Transmission Date: 20140711
  Serious: No
  Sender: FDA-Public Use
  Company Number: US-009507513-1208USA007118

PATIENT
  Sex: Male

DRUGS (2)
  1. SAPHRIS [Suspect]
     Dosage: 5 MG, QPM
     Dates: start: 2012
  2. KLONOPIN [Concomitant]

REACTIONS (5)
  - Feeling drunk [Unknown]
  - Feeling abnormal [Unknown]
  - Vertigo [Unknown]
  - Gait disturbance [Unknown]
  - Underdose [Unknown]
